FAERS Safety Report 9647860 (Version 1)
Quarter: 2013Q4

REPORT INFORMATION
  Report Type: Spontaneous
  Country: US (occurrence: US)
  Receive Date: 20131028
  Receipt Date: 20131028
  Transmission Date: 20140711
  Serious: No
  Sender: FDA-Public Use
  Company Number: US-PFIZER INC-2013306171

PATIENT
  Age: 79 Year
  Sex: Female
  Weight: 54.42 kg

DRUGS (4)
  1. LYRICA [Suspect]
     Indication: NEURALGIA
     Dosage: UNK, 1X/DAY
     Dates: start: 20131021
  2. LOSARTAN [Concomitant]
     Indication: HYPERTENSION
     Dosage: 25 MG, UNK
  3. METFORMIN [Concomitant]
     Indication: DIABETES MELLITUS
     Dosage: 500 MG, 2X/DAY
  4. OMEPRAZOLE [Concomitant]
     Indication: ABDOMINAL DISCOMFORT
     Dosage: 25 MG, DAILY

REACTIONS (3)
  - Depression [Unknown]
  - Crying [Unknown]
  - Feeling abnormal [Unknown]
